FAERS Safety Report 17047930 (Version 1)
Quarter: 2019Q4

REPORT INFORMATION
  Report Type: Spontaneous
  Country: ES (occurrence: ES)
  Receive Date: 20191119
  Receipt Date: 20191119
  Transmission Date: 20200122
  Serious: Yes (Hospitalization, Disabling, Other)
  Sender: FDA-Public Use
  Company Number: ES-PFIZER INC-2019497614

PATIENT
  Age: 51 Year
  Sex: Male
  Weight: 91 kg

DRUGS (3)
  1. HIPERTENE [Concomitant]
     Indication: HYPERTENSION
     Dosage: UNK
     Route: 048
     Dates: start: 2010, end: 2017
  2. ZYLORIC [Concomitant]
     Active Substance: ALLOPURINOL
     Indication: HYPERURICAEMIA
     Dosage: 150 MG, 1X/DAY (HALF TABLET A DAY BREAKFAST)
     Route: 048
     Dates: start: 2009
  3. ZARATOR [Suspect]
     Active Substance: ATORVASTATIN CALCIUM
     Indication: HYPERCHOLESTEROLAEMIA
     Dosage: UNK
     Route: 048
     Dates: start: 2007, end: 2010

REACTIONS (2)
  - Renal cancer stage I [Unknown]
  - Monoplegia [Recovered/Resolved]

NARRATIVE: CASE EVENT DATE: 201009
